FAERS Safety Report 13247803 (Version 1)
Quarter: 2017Q1

REPORT INFORMATION
  Report Type: Spontaneous
  Country: FR (occurrence: FR)
  Receive Date: 20170217
  Receipt Date: 20170217
  Transmission Date: 20170428
  Serious: Yes (Hospitalization, Other)
  Sender: FDA-Public Use
  Company Number: FR-ELI_LILLY_AND_COMPANY-FR201702002392

PATIENT
  Age: 86 Year
  Sex: Female

DRUGS (7)
  1. ZYPREXA [Suspect]
     Active Substance: OLANZAPINE
     Indication: AGITATION
     Dosage: 5 MG, EVERY 2 DAYS
     Route: 048
     Dates: start: 20161222, end: 20161228
  2. INEXIUM                            /01479302/ [Concomitant]
     Active Substance: ESOMEPRAZOLE MAGNESIUM
     Dosage: 1 DF, BID
     Route: 048
  3. KARDEGIC [Concomitant]
     Active Substance: ASPIRIN LYSINE
     Dosage: 75 MG, UNK
     Route: 048
  4. ADENURIC [Concomitant]
     Active Substance: FEBUXOSTAT
     Dosage: 1 DF, EACH MORNING
     Route: 048
  5. LYRICA [Concomitant]
     Active Substance: PREGABALIN
     Dosage: UNK, UNKNOWN
     Route: 065
     Dates: end: 20161222
  6. SPECIAFOLDINE [Concomitant]
     Active Substance: FOLIC ACID
     Dosage: 5 MG, UNK
     Route: 048
  7. XANAX [Concomitant]
     Active Substance: ALPRAZOLAM
     Dosage: 0.25 MG, TID
     Route: 048
     Dates: end: 20161228

REACTIONS (6)
  - Off label use [Unknown]
  - Inappropriate schedule of drug administration [Unknown]
  - General physical health deterioration [Unknown]
  - Blood pressure fluctuation [Unknown]
  - Heart rate increased [Unknown]
  - Sedation [Unknown]

NARRATIVE: CASE EVENT DATE: 20161222
